FAERS Safety Report 4415658-0 (Version None)
Quarter: 2004Q2

REPORT INFORMATION
  Report Type: 
  Country: None (occurrence: None)
  Receive Date: 20040621
  Receipt Date: 20031201
  Transmission Date: 20050107
  Serious: Yes (Death, Other)
  Sender: FDA-Public Use
  Company Number: USA-2003-0011892

PATIENT
  Age: 21 Year
  Sex: Male
  Weight: 115.2 kg

DRUGS (4)
  1. OXYCODONE HCL [Suspect]
     Indication: METASTATIC NEOPLASM
  2. ALPRAZOLAM [Suspect]
  3. FLUOXETINE [Suspect]
  4. SALICYLIC ACID (SALICYLIC ACID) [Suspect]

REACTIONS (3)
  - ACCIDENTAL OVERDOSE [None]
  - DRUG ABUSER [None]
  - MULTIPLE DRUG OVERDOSE [None]
